FAERS Safety Report 12441831 (Version 1)
Quarter: 2016Q2

REPORT INFORMATION
  Report Type: Spontaneous
  Country: US (occurrence: None)
  Receive Date: 20160606
  Receipt Date: 20160606
  Transmission Date: 20160815
  Serious: No
  Sender: FDA-Public Use
  Company Number: None

PATIENT
  Age: 60 Year
  Sex: Female

DRUGS (5)
  1. IBRANCE [Suspect]
     Active Substance: PALBOCICLIB
     Indication: BREAST CANCER
     Route: 048
  2. FOLIC ACID 1 MG TABS [Concomitant]
     Active Substance: FOLIC ACID
  3. XGEVA [Concomitant]
     Active Substance: DENOSUMAB
  4. DEXAMETHASONE. [Concomitant]
     Active Substance: DEXAMETHASONE
  5. EXEMESTANE  25 MG [Concomitant]
     Active Substance: EXEMESTANE

REACTIONS (1)
  - Drug ineffective [None]

NARRATIVE: CASE EVENT DATE: 201605
